FAERS Safety Report 25917738 (Version 1)
Quarter: 2025Q4

REPORT INFORMATION
  Report Type: Spontaneous
  Country: MA (occurrence: MA)
  Receive Date: 20251014
  Receipt Date: 20251014
  Transmission Date: 20260118
  Serious: Yes (Death, Other)
  Sender: Onesource Specialty Pharma
  Company Number: MA-STRIDES ARCOLAB LIMITED-2025OS000947

PATIENT
  Age: 63 Year
  Sex: Female

DRUGS (2)
  1. ETOPOSIDE [Suspect]
     Active Substance: ETOPOSIDE
     Indication: Burkitt^s lymphoma
     Dosage: CYVE REGIMEN
     Route: 065
  2. CYTARABINE [Suspect]
     Active Substance: CYTARABINE
     Indication: Burkitt^s lymphoma
     Dosage: CYVE REGIMEN
     Route: 065

REACTIONS (3)
  - Septic shock [Fatal]
  - Toxicity to various agents [Fatal]
  - Off label use [Unknown]
